FAERS Safety Report 9914988 (Version 1)
Quarter: 2014Q1

REPORT INFORMATION
  Report Type: Spontaneous
  Country: US (occurrence: US)
  Receive Date: 20140220
  Receipt Date: 20140220
  Transmission Date: 20141002
  Serious: Yes (Hospitalization)
  Sender: FDA-Public Use
  Company Number: PHHY2014US019820

PATIENT
  Age: 47 Year
  Sex: Female

DRUGS (1)
  1. ACETYLSALICYLIC ACID [Suspect]

REACTIONS (8)
  - Analgesic asthma syndrome [Unknown]
  - Wheezing [Unknown]
  - Nasal polyps [Unknown]
  - Nasal obstruction [Unknown]
  - Allergic granulomatous angiitis [Recovering/Resolving]
  - Eosinophilia [Unknown]
  - Polyneuropathy [Unknown]
  - Blindness unilateral [Unknown]
